FAERS Safety Report 7659366-1 (Version None)
Quarter: 2011Q3

REPORT INFORMATION
  Report Type: 
  Country: None (occurrence: None)
  Receive Date: 20110802
  Receipt Date: 20110721
  Transmission Date: 20111222
  Serious: Yes (Hospitalization, Other)
  Sender: FDA-Public Use
  Company Number: 2010SP028269

PATIENT
  Age: 38 Year
  Sex: Female
  Weight: 65.7716 kg

DRUGS (5)
  1. ASCORBIC ACID [Concomitant]
  2. VITAMIN B-12 [Concomitant]
  3. NUVARING [Suspect]
     Indication: CONTRACEPTION
     Dates: start: 20051001, end: 20080516
  4. MULTI-VITAMINS [Concomitant]
  5. FERROUS SULFATE TAB [Concomitant]

REACTIONS (6)
  - MELANOCYTIC NAEVUS [None]
  - PULMONARY EMBOLISM [None]
  - BENIGN NEOPLASM [None]
  - DEEP VEIN THROMBOSIS [None]
  - THYROID DISORDER [None]
  - SUPERFICIAL SPREADING MELANOMA STAGE II [None]
